FAERS Safety Report 4699885-3 (Version None)
Quarter: 2005Q2

REPORT INFORMATION
  Report Type: 
  Country: None (occurrence: None)
  Receive Date: 20050623
  Receipt Date: 20050617
  Transmission Date: 20051028
  Serious: Yes (Hospitalization)
  Sender: FDA-Public Use
  Company Number: FRWYE390101FEB05

PATIENT
  Age: 35 Year
  Sex: Male

DRUGS (3)
  1. EFFEXOR LP [Suspect]
     Indication: DEPRESSION
     Dosage: 2 CAPSULE 1X PER 1 DAY; ORAL
     Route: 048
     Dates: start: 20041001, end: 20050101
  2. EFFEXOR LP (VENLAFAXINE HYDROCHLORIDE, CAPSULE, EXTENDED RELEASE, ) LO [Suspect]
     Dosage: 3 CAPSULE 1X PER 1 DAY; ORAL
     Route: 048
     Dates: start: 20050101, end: 20050101
  3. EFFEXOR LP (VENLAFAXINE HYDROCHLORIDE, CAPSULE, EXTENDED RELEASE, 0) L [Suspect]
     Dosage: 1 CAPSULE 1X PER 1 DAY; ORAL
     Route: 048
     Dates: start: 20050101, end: 20050101

REACTIONS (7)
  - BLOOD THYROID STIMULATING HORMONE INCREASED [None]
  - DRUG INEFFECTIVE [None]
  - HAEMATOSPERMIA [None]
  - HAEMATURIA [None]
  - PROSTATITIS [None]
  - SOMNOLENCE [None]
  - WHITE BLOOD CELL COUNT INCREASED [None]
